FAERS Safety Report 4526292-6 (Version None)
Quarter: 2004Q4

REPORT INFORMATION
  Report Type: 
  Country: None (occurrence: None)
  Receive Date: 20041203
  Receipt Date: 20040715
  Transmission Date: 20050328
  Serious: Yes (Other)
  Sender: FDA-Public Use
  Company Number: 002045

PATIENT
  Sex: Female

DRUGS (3)
  1. ESTRADIOL [Suspect]
  2. PREMARIN [Suspect]
  3. PREMPRO [Suspect]

REACTIONS (2)
  - DEEP VEIN THROMBOSIS [None]
  - PULMONARY EMBOLISM [None]
